FAERS Safety Report 11865235 (Version 1)
Quarter: 2015Q4

REPORT INFORMATION
  Report Type: Spontaneous
  Country: US (occurrence: US)
  Receive Date: 20151223
  Receipt Date: 20151223
  Transmission Date: 20160305
  Serious: Yes (Death)
  Sender: FDA-Public Use
  Company Number: US-CELGENE-USA-2015112534

PATIENT
  Age: 29 Year
  Sex: Female

DRUGS (1)
  1. THALOMID [Suspect]
     Active Substance: THALIDOMIDE
     Indication: MENINGITIS TUBERCULOUS
     Dosage: 200 MILLIGRAM
     Route: 048
     Dates: start: 201510, end: 2015

REACTIONS (2)
  - Meningitis tuberculous [Fatal]
  - Intraventricular haemorrhage [Fatal]

NARRATIVE: CASE EVENT DATE: 201511
